FAERS Safety Report 10138527 (Version 2)
Quarter: 2014Q2

REPORT INFORMATION
  Report Type: Spontaneous
  Country: AU (occurrence: AU)
  Receive Date: 20140429
  Receipt Date: 20140513
  Transmission Date: 20141212
  Serious: Yes (Hospitalization, Other)
  Sender: FDA-Public Use
  Company Number: AU-B.I. PHARMACEUTICALS,INC./RIDGEFIELD-2014-BI-18529AU

PATIENT
  Age: 74 Year
  Sex: Female
  Weight: 64 kg

DRUGS (4)
  1. PRADAXA [Suspect]
     Indication: ATRIAL FIBRILLATION
     Dosage: 220 MG
     Route: 065
     Dates: start: 20110627, end: 20131127
  2. DIGOXIN [Concomitant]
     Route: 065
     Dates: start: 20110511
  3. AMLODIPINE [Concomitant]
     Route: 065
     Dates: start: 20110125
  4. ATENOLOL [Concomitant]
     Route: 065
     Dates: start: 20110511

REACTIONS (3)
  - Acute myocardial infarction [Recovered/Resolved]
  - Chest pain [Unknown]
  - Breast cancer [Unknown]
